FAERS Safety Report 9770118 (Version 2)
Quarter: 2013Q4

REPORT INFORMATION
  Report Type: Spontaneous
  Country: US (occurrence: US)
  Receive Date: 20131218
  Receipt Date: 20131218
  Transmission Date: 20140711
  Serious: No
  Sender: FDA-Public Use
  Company Number: US-VERTEX PHARMACEUTICALS INC-AE-2011-000786

PATIENT
  Age: 36 Year
  Sex: Female
  Weight: 70.46 kg

DRUGS (5)
  1. INCIVEK [Suspect]
     Indication: HEPATITIS C
     Route: 048
     Dates: start: 20110803
  2. PEGASYS [Concomitant]
     Indication: HEPATITIS C
     Route: 058
     Dates: start: 20110803
  3. COPEGUS [Concomitant]
     Indication: HEPATITIS C
     Dates: start: 20110803
  4. NEURONTIN [Concomitant]
  5. PRILOSEC [Concomitant]

REACTIONS (1)
  - Rash pruritic [Recovered/Resolved]
